FAERS Safety Report 21624778 (Version 2)
Quarter: 2022Q4

REPORT INFORMATION
  Report Type: Report from Study
  Country: US (occurrence: US)
  Receive Date: 20221122
  Receipt Date: 20221123
  Transmission Date: 20230113
  Serious: Yes (Other)
  Sender: FDA-Public Use
  Company Number: US-ABBVIE-4207717

PATIENT
  Sex: Female

DRUGS (1)
  1. SKYRIZI [Suspect]
     Active Substance: RISANKIZUMAB-RZAA
     Indication: Product used for unknown indication
     Route: 058

REACTIONS (7)
  - Chronic lymphocytic leukaemia [Unknown]
  - Bacterial infection [Unknown]
  - Psoriasis [Not Recovered/Not Resolved]
  - Eczema [Unknown]
  - Skin weeping [Unknown]
  - Skin fragility [Unknown]
  - Adverse drug reaction [Recovered/Resolved]
